FAERS Safety Report 19006656 (Version 1)
Quarter: 2021Q1

REPORT INFORMATION
  Report Type: Spontaneous
  Country: US (occurrence: US)
  Receive Date: 20210312
  Receipt Date: 20210312
  Transmission Date: 20210420
  Serious: Yes (Hospitalization)
  Sender: FDA-Public Use
  Company Number: None

PATIENT
  Age: 17 Year
  Sex: Male

DRUGS (16)
  1. ARIPIPRAZOLE. [Concomitant]
     Active Substance: ARIPIPRAZOLE
  2. B?COMPL/B?12 [Concomitant]
  3. CETIRIZINE [Concomitant]
     Active Substance: CETIRIZINE HYDROCHLORIDE
  4. ENALAPRIL [Concomitant]
     Active Substance: ENALAPRIL
  5. FLUTICASONE. [Concomitant]
     Active Substance: FLUTICASONE
  6. CEPHALEXIN. [Concomitant]
     Active Substance: CEPHALEXIN
  7. FUROSEMIDE. [Concomitant]
     Active Substance: FUROSEMIDE
  8. OXCARBAZEPIN [Concomitant]
     Active Substance: OXCARBAZEPINE
  9. DIGOXIN. [Concomitant]
     Active Substance: DIGOXIN
  10. LEVALBUTEROL NEB [Concomitant]
  11. WARFARIN [Concomitant]
     Active Substance: WARFARIN
  12. SILDENAFIL 20MG TAB [Suspect]
     Active Substance: SILDENAFIL
     Indication: PULMONARY ARTERIAL HYPERTENSION
     Dosage: 40MG (2 TABS) TID PO
     Route: 048
     Dates: start: 20190214
  13. CALCIUM 500+D [Concomitant]
     Active Substance: CALCIUM\VITAMIN D
  14. CAPTOPRIL. [Concomitant]
     Active Substance: CAPTOPRIL
  15. CENTRUM [Concomitant]
     Active Substance: VITAMINS
  16. AZELASTINE. [Concomitant]
     Active Substance: AZELASTINE HYDROCHLORIDE

REACTIONS (1)
  - Heart transplant [None]

NARRATIVE: CASE EVENT DATE: 20210310
